FAERS Safety Report 7005049-0 (Version None)
Quarter: 2010Q3

REPORT INFORMATION
  Report Type: 
  Country: None (occurrence: None)
  Receive Date: 20100921
  Receipt Date: 20100913
  Transmission Date: 20110219
  Serious: Yes (Hospitalization, Other)
  Sender: FDA-Public Use
  Company Number: BR-SANOFI-AVENTIS-2010SA055410

PATIENT
  Age: 9 Year
  Sex: Female
  Weight: 31 kg

DRUGS (3)
  1. LANTUS [Suspect]
     Route: 058
     Dates: start: 20100903
  2. SOLOSTAR [Suspect]
  3. NOVORAPID [Concomitant]
     Indication: TYPE 1 DIABETES MELLITUS
     Route: 058

REACTIONS (3)
  - BLOOD GLUCOSE INCREASED [None]
  - JOINT DISLOCATION [None]
  - UPPER LIMB FRACTURE [None]
